FAERS Safety Report 9721897 (Version 19)
Quarter: 2018Q2

REPORT INFORMATION
  Report Type: Spontaneous
  Country: CA (occurrence: CA)
  Receive Date: 20131201
  Receipt Date: 20180424
  Transmission Date: 20180711
  Serious: Yes (Hospitalization, Other)
  Sender: FDA-Public Use
  Company Number: CA-ROCHE-1311422

PATIENT
  Age: 58 Year
  Sex: Female

DRUGS (26)
  1. XOLAIR [Suspect]
     Active Substance: OMALIZUMAB
     Indication: ASTHMA
     Route: 058
     Dates: start: 20120502
  2. XOLAIR [Suspect]
     Active Substance: OMALIZUMAB
     Route: 058
     Dates: start: 20141020
  3. XOLAIR [Suspect]
     Active Substance: OMALIZUMAB
     Route: 058
     Dates: start: 20170223
  4. SPIRIVA [Concomitant]
     Active Substance: TIOTROPIUM BROMIDE MONOHYDRATE
     Route: 065
  5. CLARITHROMYCIN. [Concomitant]
     Active Substance: CLARITHROMYCIN
  6. XOLAIR [Suspect]
     Active Substance: OMALIZUMAB
     Route: 058
     Dates: start: 20170626
  7. XOLAIR [Suspect]
     Active Substance: OMALIZUMAB
     Route: 058
     Dates: start: 20170810
  8. PREDNISONE. [Suspect]
     Active Substance: PREDNISONE
     Dosage: 20 MG, UNK
     Route: 065
  9. PREDNISONE. [Suspect]
     Active Substance: PREDNISONE
     Dosage: 25 MG, QD (7-10 DAYS)
     Route: 065
  10. XOLAIR [Suspect]
     Active Substance: OMALIZUMAB
     Route: 058
     Dates: start: 20170823
  11. SINGULAIR [Concomitant]
     Active Substance: MONTELUKAST SODIUM
     Indication: PRODUCT USED FOR UNKNOWN INDICATION
  12. XOLAIR [Suspect]
     Active Substance: OMALIZUMAB
     Route: 058
     Dates: start: 20171018
  13. SYMBICORT [Concomitant]
     Active Substance: BUDESONIDE\FORMOTEROL FUMARATE DIHYDRATE
     Indication: PRODUCT USED FOR UNKNOWN INDICATION
     Route: 065
  14. XOLAIR [Suspect]
     Active Substance: OMALIZUMAB
     Route: 058
  15. XOLAIR [Suspect]
     Active Substance: OMALIZUMAB
     Route: 058
     Dates: start: 20170907
  16. SPIRIVA [Concomitant]
     Active Substance: TIOTROPIUM BROMIDE MONOHYDRATE
     Indication: PRODUCT USED FOR UNKNOWN INDICATION
     Route: 065
  17. XOLAIR [Suspect]
     Active Substance: OMALIZUMAB
     Route: 058
     Dates: start: 20180315
  18. PREDNISONE. [Suspect]
     Active Substance: PREDNISONE
     Indication: PRODUCT USED FOR UNKNOWN INDICATION
     Dosage: 25 MG, QD
     Route: 065
  19. QVAR [Concomitant]
     Active Substance: BECLOMETHASONE DIPROPIONATE
     Indication: PRODUCT USED FOR UNKNOWN INDICATION
     Route: 065
  20. ADVAIR HFA [Concomitant]
     Active Substance: FLUTICASONE PROPIONATE\SALMETEROL XINAFOATE
     Indication: PRODUCT USED FOR UNKNOWN INDICATION
     Route: 065
  21. XOLAIR [Suspect]
     Active Substance: OMALIZUMAB
     Route: 058
     Dates: start: 20131126
  22. XOLAIR [Suspect]
     Active Substance: OMALIZUMAB
     Route: 058
     Dates: start: 20170517
  23. XOLAIR [Suspect]
     Active Substance: OMALIZUMAB
     Route: 058
     Dates: start: 20170713
  24. XOLAIR [Suspect]
     Active Substance: OMALIZUMAB
     Route: 058
     Dates: start: 20171004
  25. VENTOLIN [Concomitant]
     Active Substance: ALBUTEROL SULFATE
     Indication: PRODUCT USED FOR UNKNOWN INDICATION
     Dosage: EVERY 2 TO 3 WEEKS
     Route: 065
  26. VENTOLIN [Concomitant]
     Active Substance: ALBUTEROL SULFATE
     Dosage: EVERY 2-3 WEEKS
     Route: 065

REACTIONS (17)
  - Blood glucose fluctuation [Unknown]
  - Chest discomfort [Unknown]
  - Emphysema [Unknown]
  - Nasal congestion [Unknown]
  - Obstructive airways disorder [Unknown]
  - Upper respiratory tract infection [Unknown]
  - Malaise [Unknown]
  - Asthma [Recovered/Resolved]
  - Hyperhidrosis [Unknown]
  - Seasonal allergy [Unknown]
  - Sarcoidosis [Unknown]
  - Sputum discoloured [Unknown]
  - Hyperglycaemia [Recovered/Resolved]
  - Heart rate increased [Not Recovered/Not Resolved]
  - Forced expiratory volume decreased [Unknown]
  - Asthma [Recovering/Resolving]
  - Productive cough [Unknown]

NARRATIVE: CASE EVENT DATE: 20130826
